FAERS Safety Report 10884612 (Version 2)
Quarter: 2015Q1

REPORT INFORMATION
  Report Type: Spontaneous
  Country: GB (occurrence: GB)
  Receive Date: 20150304
  Receipt Date: 20150326
  Transmission Date: 20150721
  Serious: Yes (Disabling)
  Sender: FDA-Public Use
  Company Number: GB-TEVA-543901ACC

PATIENT
  Age: 85 Year
  Sex: Male
  Weight: 75.29 kg

DRUGS (17)
  1. DIPROBASE [Concomitant]
     Active Substance: CHLOROCRESOL
  2. TRIMETHOPRIM. [Suspect]
     Active Substance: TRIMETHOPRIM
     Indication: URINARY TRACT INFECTION
     Dosage: 400 MILLIGRAM DAILY;
     Route: 048
     Dates: start: 20150205, end: 20150206
  3. ASPIRIN. [Concomitant]
     Active Substance: ASPIRIN
  4. METFORMIN [Concomitant]
     Active Substance: METFORMIN HYDROCHLORIDE
  5. ATORVASTATIN [Concomitant]
     Active Substance: ATORVASTATIN
  6. DONEPEZIL [Concomitant]
     Active Substance: DONEPEZIL
  7. LATANOPROST. [Concomitant]
     Active Substance: LATANOPROST
  8. BUDESONIDE. [Concomitant]
     Active Substance: BUDESONIDE
  9. CLOTRIMAZOLE. [Concomitant]
     Active Substance: CLOTRIMAZOLE
  10. LEVETIRACETAM. [Concomitant]
     Active Substance: LEVETIRACETAM
  11. TAMSULOSIN [Concomitant]
     Active Substance: TAMSULOSIN
  12. AUGMENTIN [Suspect]
     Active Substance: AMOXICILLIN\CLAVULANATE POTASSIUM
     Indication: LOWER RESPIRATORY TRACT INFECTION
     Dosage: 1875 MILLIGRAM DAILY;
     Route: 048
     Dates: start: 20150212, end: 20150213
  13. ALLOPURINOL. [Concomitant]
     Active Substance: ALLOPURINOL
  14. SALBUTAMOL [Concomitant]
     Active Substance: ALBUTEROL
  15. TIOTROPIUM BROMIDE [Concomitant]
     Active Substance: TIOTROPIUM BROMIDE
  16. BRINZOLAMIDE [Concomitant]
     Active Substance: BRINZOLAMIDE
  17. SUDOCREM [Concomitant]

REACTIONS (4)
  - Pruritus generalised [Recovered/Resolved]
  - Insomnia [Recovered/Resolved]
  - Skin warm [Recovered/Resolved]
  - Skin irritation [Recovered/Resolved]

NARRATIVE: CASE EVENT DATE: 20150205
